FAERS Safety Report 7165513-0 (Version None)
Quarter: 2010Q4

REPORT INFORMATION
  Report Type: 
  Country: None (occurrence: None)
  Receive Date: 20101215
  Receipt Date: 20100225
  Transmission Date: 20110411
  Serious: Yes (Hospitalization)
  Sender: FDA-Public Use
  Company Number: US-AMGEN-QUU383850

PATIENT

DRUGS (2)
  1. ENBREL [Suspect]
     Indication: RHEUMATOID ARTHRITIS
     Dosage: 50 MG, QWK
     Route: 058
     Dates: start: 20090524
  2. LITHIUM [Suspect]

REACTIONS (4)
  - ASTHMA [None]
  - DYSKINESIA [None]
  - LUNG DISORDER [None]
  - TREMOR [None]
